FAERS Safety Report 8937004 (Version 1)
Quarter: 2012Q4

REPORT INFORMATION
  Report Type: 
  Country: US (occurrence: US)
  Receive Date: 20121130
  Receipt Date: 20121130
  Transmission Date: 20130627
  Serious: No
  Sender: FDA-Public Use
  Company Number: US-009507513-1211USA011869

PATIENT
  Age: 81 Year
  Sex: Female

DRUGS (2)
  1. ASMANEX TWISTHALER [Suspect]
     Indication: EMPHYSEMA
     Dosage: 220MCG/once in the morning and once in the evening
  2. ASMANEX TWISTHALER [Suspect]
     Indication: DYSPNOEA

REACTIONS (2)
  - Candidiasis [Unknown]
  - Dysphonia [Unknown]
